FAERS Safety Report 12146745 (Version 1)
Quarter: 2016Q1

REPORT INFORMATION
  Report Type: Spontaneous
  Country: ES (occurrence: ES)
  Receive Date: 20160304
  Receipt Date: 20160304
  Transmission Date: 20160526
  Serious: Yes (Hospitalization)
  Sender: FDA-Public Use
  Company Number: ES-GLAXOSMITHKLINE-ES2016027378

PATIENT
  Age: 11 Year
  Sex: Female
  Weight: 35 kg

DRUGS (9)
  1. NOIAFREN 10 MG COMPRIMIDOS, 20 COMPRIMIDOS [Concomitant]
     Indication: EPILEPSY
     Route: 048
     Dates: start: 200604, end: 20151231
  2. CIPROFLOXACINO RATIO 250 MG COMPRIMIDOS RECUBIERTOS CON PELICULA EFG, [Concomitant]
     Route: 048
     Dates: start: 20160111, end: 20160115
  3. NOIAFREN 20 MG COMPRIMIDOS , 20 COMPRIMIDOS [Concomitant]
     Indication: EPILEPSY
     Route: 048
     Dates: start: 20160101
  4. AZITROMICINA ARAFARMA 150 MG POLVO PARA SUSPENSION ORAL EN SOBRE, 100 [Concomitant]
     Indication: BRONCHITIS
     Route: 048
     Dates: start: 201405, end: 20160115
  5. LAMICTAL 200 MG COMPRIMIDOS MASTICABLES/DISPERSABLES , 30 COMPRIMIDOS [Concomitant]
     Indication: EPILEPSY
     Route: 048
     Dates: start: 200811, end: 20160103
  6. BUDESONIDA EASYHALER 200 MCG POLVO PARA INHALACION, 1 INHALADOR DE 200 [Concomitant]
     Indication: BRONCHITIS
     Route: 055
     Dates: start: 201408
  7. VIMPAT [Suspect]
     Active Substance: LACOSAMIDE
     Indication: EPILEPSY
     Dosage: 150 MG, BID
     Route: 048
     Dates: start: 201412
  8. SALBUTAMOL ALDO-UNION 100 MICROGRAMOS/DOSIS SUSPENSION PARA INHALACION [Concomitant]
     Indication: BRONCHITIS
     Route: 055
     Dates: start: 200901
  9. LAMICTAL [Suspect]
     Active Substance: LAMOTRIGINE
     Indication: EPILEPSY
     Dosage: 175 MG, BID
     Route: 048
     Dates: start: 20160104

REACTIONS (1)
  - Bradycardia [Recovered/Resolved]

NARRATIVE: CASE EVENT DATE: 20160115
